FAERS Safety Report 20199756 (Version 1)
Quarter: 2021Q4

REPORT INFORMATION
  Report Type: Spontaneous
  Country: US (occurrence: US)
  Receive Date: 20211217
  Receipt Date: 20211217
  Transmission Date: 20220303
  Serious: No
  Sender: FDA-Public Use
  Company Number: US-NOVEN PHARMACEUTICALS, INC.-2021-NOV-US003367

PATIENT
  Age: 50 Year
  Sex: Female

DRUGS (2)
  1. ESTRADIOL [Suspect]
     Active Substance: ESTRADIOL
     Indication: Artificial menopause
     Dosage: 0.05, UNKNOWN
     Route: 062
     Dates: start: 2016, end: 2016
  2. ESTRADIOL [Suspect]
     Active Substance: ESTRADIOL
     Dosage: 0.075, UNKNOWN
     Route: 062
     Dates: start: 2016, end: 2016

REACTIONS (2)
  - Tremor [Recovered/Resolved]
  - Adverse drug reaction [Recovered/Resolved]

NARRATIVE: CASE EVENT DATE: 20160101
